FAERS Safety Report 9633334 (Version 1)
Quarter: 2013Q4

REPORT INFORMATION
  Report Type: Spontaneous
  Country: US (occurrence: None)
  Receive Date: 20131018
  Receipt Date: 20131018
  Transmission Date: 20140711
  Serious: Yes (Disabling)
  Sender: FDA-Public Use
  Company Number: None

PATIENT
  Age: 66 Year
  Sex: Female

DRUGS (20)
  1. HYDROCODONE [Suspect]
     Indication: COUGH
     Dosage: 1 GIVEN @ HOSP. THE MORNING OF DISCHARGE TO CONTINUE PNEUMONIA TREATMENT @ HOME.
     Route: 048
     Dates: start: 20130730, end: 20130730
  2. HYDROCODONE [Suspect]
     Indication: PAIN
     Dosage: 1 GIVEN @ HOSP. THE MORNING OF DISCHARGE TO CONTINUE PNEUMONIA TREATMENT @ HOME.
     Route: 048
     Dates: start: 20130730, end: 20130730
  3. OMEPRAZOLE 10 MG [Concomitant]
  4. LOSARTIN HCT [Concomitant]
  5. BUPROPION SR 150 MG [Concomitant]
  6. HYDROXYCHLOROQUINE 200 MG [Concomitant]
  7. METHOTREXATE 25 MG [Concomitant]
  8. FOLIC ACID 1 MG [Concomitant]
  9. FLUTICASONE 500 MG [Concomitant]
  10. CALCIUM 500 MG/VIT D 200 [Concomitant]
  11. FISH OIL 1200 MG [Concomitant]
  12. VIT D 1000 U [Concomitant]
  13. VIT D 200 [Concomitant]
  14. VIT B-12 1000 IU [Concomitant]
  15. VIT B650 MG [Concomitant]
  16. MAGNESIUM 250MG [Concomitant]
  17. IBUPROFEN 200 MG [Concomitant]
  18. TYLENOL [Concomitant]
  19. ASPIRIN [Concomitant]
  20. LORATADINE 10 MG [Concomitant]

REACTIONS (4)
  - Mental disorder [None]
  - Disturbance in attention [None]
  - Dysgraphia [None]
  - Fatigue [None]
